FAERS Safety Report 8902473 (Version 3)
Quarter: 2013Q1

REPORT INFORMATION
  Report Type: Spontaneous
  Country: JP (occurrence: JP)
  Receive Date: 20121112
  Receipt Date: 20130102
  Transmission Date: 20140127
  Serious: Yes (Death)
  Sender: FDA-Public Use
  Company Number: JP-JNJFOC-20121104968

PATIENT
  Age: 66 Year
  Sex: Male

DRUGS (8)
  1. REMINYL [Suspect]
     Indication: EMOTIONAL DISORDER
     Route: 048
     Dates: start: 20120913
  2. REMINYL [Suspect]
     Indication: DEMENTIA ALZHEIMER^S TYPE
     Route: 048
     Dates: start: 20120913
  3. AMANTADINE HCL [Concomitant]
     Indication: PARKINSONISM
     Route: 048
     Dates: start: 20090709
  4. YOKUKAN-SAN [Concomitant]
     Indication: DEMENTIA
     Route: 048
     Dates: start: 20110118
  5. DOPACOL [Concomitant]
     Indication: PARKINSONISM
     Route: 048
     Dates: start: 20090709
  6. DIOVAN [Concomitant]
     Indication: HYPERTENSION
     Route: 048
     Dates: start: 20091109
  7. PROPIVERINE HYDROCHLORIDE [Concomitant]
     Indication: NEUROGENIC BLADDER
     Route: 048
     Dates: start: 20090709
  8. TIEKAPTO [Concomitant]
     Indication: GASTRIC ULCER
     Route: 048
     Dates: start: 20100409

REACTIONS (3)
  - Acute respiratory failure [Fatal]
  - Haematemesis [Fatal]
  - Pyrexia [Fatal]
